FAERS Safety Report 15714169 (Version 1)
Quarter: 2018Q4

REPORT INFORMATION
  Report Type: Spontaneous
  Country: US (occurrence: US)
  Receive Date: 20181212
  Receipt Date: 20181212
  Transmission Date: 20190205
  Serious: Yes (Hospitalization)
  Sender: FDA-Public Use
  Company Number: US-LANNETT COMPANY, INC.-US-2018LAN001387

PATIENT
  Age: 42 Year
  Sex: Male

DRUGS (16)
  1. CYPROHEPTADINE HYDROCHLORIDE. [Suspect]
     Active Substance: CYPROHEPTADINE HYDROCHLORIDE
     Indication: SEROTONIN SYNDROME
     Dosage: 12 MG, UNK (LOADING DOSE)
     Route: 065
  2. LORAZEPAM. [Suspect]
     Active Substance: LORAZEPAM
     Dosage: UNK, INFUSION
     Route: 065
  3. BASIL FES [Suspect]
     Active Substance: BASIL\HERBALS
     Indication: PHYTOTHERAPY
     Dosage: UNK
     Route: 065
  4. CYPROHEPTADINE HYDROCHLORIDE. [Suspect]
     Active Substance: CYPROHEPTADINE HYDROCHLORIDE
     Dosage: 2 MG, EVERY 2H (MAINTENANCE DOSE)
     Route: 065
  5. CYPROHEPTADINE HYDROCHLORIDE. [Suspect]
     Active Substance: CYPROHEPTADINE HYDROCHLORIDE
     Dosage: 4 MG, EVERY 8 HOURS
     Route: 065
  6. LORAZEPAM. [Suspect]
     Active Substance: LORAZEPAM
     Indication: SEROTONIN SYNDROME
     Dosage: 2 MG INCREMENTAL DOSES TO A TOTAL OF 16 MG
     Route: 042
  7. GINSENG                            /01199605/ [Suspect]
     Active Substance: ASIAN GINSENG
     Indication: PHYTOTHERAPY
     Dosage: UNK
     Route: 065
  8. PHENYLEPHRINE [Suspect]
     Active Substance: PHENYLEPHRINE\PHENYLEPHRINE HYDROCHLORIDE
     Indication: PRODUCT USED FOR UNKNOWN INDICATION
     Dosage: UNK
     Route: 065
  9. LISDEXAMFETAMINE [Concomitant]
     Active Substance: LISDEXAMFETAMINE
     Indication: ATTENTION DEFICIT/HYPERACTIVITY DISORDER
     Dosage: 20 MG, QD
  10. FENTANYL. [Suspect]
     Active Substance: FENTANYL
     Indication: GENERAL ANAESTHESIA
     Dosage: 1000 ?G, UNK
     Route: 065
  11. CYPROHEPTADINE HYDROCHLORIDE. [Suspect]
     Active Substance: CYPROHEPTADINE HYDROCHLORIDE
     Dosage: 6 MG, EVERY 8 HOURS (TAPERING DOSE)
     Route: 065
  12. PAROXETINE HYDROCHLORIDE. [Suspect]
     Active Substance: PAROXETINE HYDROCHLORIDE
     Indication: DEPRESSION
     Dosage: 40 MG, QD
     Route: 048
  13. METHYLENE BLUE. [Suspect]
     Active Substance: METHYLENE BLUE
     Indication: VASOPRESSIVE THERAPY
     Dosage: 70 MG, UNK
     Route: 065
  14. BUPROPION. [Suspect]
     Active Substance: BUPROPION
     Indication: ATTENTION DEFICIT/HYPERACTIVITY DISORDER
     Dosage: 75 MG, QD
     Route: 065
  15. FENUGREEK                          /01475701/ [Suspect]
     Active Substance: HERBALS
     Indication: PHYTOTHERAPY
     Dosage: UNK
     Route: 065
  16. PAROXETINE HYDROCHLORIDE. [Suspect]
     Active Substance: PAROXETINE HYDROCHLORIDE
     Indication: ANXIETY

REACTIONS (2)
  - Delirium [Recovered/Resolved]
  - Confusional state [Recovered/Resolved]
